FAERS Safety Report 7016357-1 (Version None)
Quarter: 2010Q3

REPORT INFORMATION
  Report Type: 
  Country: None (occurrence: None)
  Receive Date: 20100927
  Receipt Date: 20100915
  Transmission Date: 20110219
  Serious: Yes (Other)
  Sender: FDA-Public Use
  Company Number: GB-PFIZER INC-2010088305

PATIENT
  Age: 45 Year
  Sex: Female

DRUGS (6)
  1. GENOTROPIN [Suspect]
     Dosage: 0.3 MG, 1X/DAY
     Route: 058
     Dates: start: 20100624
  2. LEVOTHYROXINE SODIUM [Concomitant]
     Dosage: 125 UG, 1X/DAY
     Route: 048
  3. SIMVASTATIN [Concomitant]
     Dosage: 40 MG, 1X/DAY
     Route: 048
  4. GABAPENTIN [Concomitant]
     Dosage: 600 MG, 3X/DAY
     Route: 048
  5. METFORMIN [Concomitant]
     Dosage: 500 MG, 2X/DAY
     Route: 048
  6. OMEPRAZOLE [Concomitant]
     Route: 048

REACTIONS (2)
  - JOINT SWELLING [None]
  - OEDEMA PERIPHERAL [None]
